FAERS Safety Report 24007313 (Version 1)
Quarter: 2024Q2

REPORT INFORMATION
  Report Type: Spontaneous
  Country: US (occurrence: US)
  Receive Date: 20240624
  Receipt Date: 20240624
  Transmission Date: 20240716
  Serious: No
  Sender: FDA-Public Use
  Company Number: US-CIPLA LTD.-2024US03915

PATIENT

DRUGS (1)
  1. LENALIDOMIDE [Suspect]
     Active Substance: LENALIDOMIDE
     Indication: Product used for unknown indication
     Dosage: 2.5 MILLIGRAM, UNK
     Route: 065
     Dates: start: 20210505

REACTIONS (3)
  - Gastrointestinal disorder [Unknown]
  - Cytogenetic abnormality [Unknown]
  - Adverse event [Unknown]

NARRATIVE: CASE EVENT DATE: 20240416
